FAERS Safety Report 26032245 (Version 1)
Quarter: 2025Q4

REPORT INFORMATION
  Report Type: Spontaneous
  Country: KR (occurrence: KR)
  Receive Date: 20251112
  Receipt Date: 20251112
  Transmission Date: 20260119
  Serious: Yes (Death)
  Sender: JOHNSON AND JOHNSON
  Company Number: KR-JNJFOC-20251149144

PATIENT
  Age: 70 Year
  Sex: Female

DRUGS (1)
  1. DARZALEX [Suspect]
     Active Substance: DARATUMUMAB
     Indication: Primary amyloidosis
     Route: 058
     Dates: start: 20250708

REACTIONS (1)
  - Plasma cell myeloma [Fatal]
